FAERS Safety Report 6653813-X (Version None)
Quarter: 2010Q1

REPORT INFORMATION
  Report Type: 
  Country: None (occurrence: None)
  Receive Date: 20100326
  Receipt Date: 20100316
  Transmission Date: 20100710
  Serious: Yes (Hospitalization)
  Sender: FDA-Public Use
  Company Number: B0554369D

PATIENT
  Sex: Female
  Weight: 9.3 kg

DRUGS (2)
  1. LEXIVA [Suspect]
     Indication: HIV INFECTION
     Dosage: 9ML TWICE PER DAY
     Dates: start: 20080827
  2. RITONAVIR [Suspect]
     Indication: HIV INFECTION
     Dosage: 1.25ML TWICE PER DAY
     Dates: start: 20080827

REACTIONS (7)
  - DEHYDRATION [None]
  - DIARRHOEA [None]
  - ESCHERICHIA URINARY TRACT INFECTION [None]
  - GASTROENTERITIS [None]
  - HYPOKALAEMIA [None]
  - PYREXIA [None]
  - VOMITING [None]
